FAERS Safety Report 7776894-9 (Version None)
Quarter: 2011Q3

REPORT INFORMATION
  Report Type: 
  Country: None (occurrence: None)
  Receive Date: 20110926
  Receipt Date: 20110909
  Transmission Date: 20111222
  Serious: Yes (Hospitalization)
  Sender: FDA-Public Use
  Company Number: IT-BAYER-2011-084269

PATIENT
  Age: 84 Year
  Sex: Male

DRUGS (7)
  1. ASPIRIN [Suspect]
     Indication: CEREBRAL ISCHAEMIA
     Dosage: 100 MG, QD
     Route: 048
     Dates: start: 20110101, end: 20110829
  2. SIMVASTATIN [Concomitant]
  3. ENALAPRIL MALEATE [Concomitant]
     Indication: HYPERTENSION
     Dosage: DAILY DOSE 20 MG
     Route: 048
  4. TAPAZOLE [Concomitant]
     Dosage: DAILY DOSE 5 MG
     Route: 048
  5. CACIT [Concomitant]
  6. ALIFLUS [Concomitant]
  7. NIMESULIDE [Suspect]
     Dosage: DAILY DOSE 1 DF
     Route: 048
     Dates: start: 20110820, end: 20110829

REACTIONS (2)
  - DUODENAL ULCER HAEMORRHAGE [None]
  - ANAEMIA [None]
